FAERS Safety Report 15921329 (Version 2)
Quarter: 2019Q1

REPORT INFORMATION
  Report Type: Spontaneous
  Country: ES (occurrence: ES)
  Receive Date: 20190205
  Receipt Date: 20190211
  Transmission Date: 20190417
  Serious: Yes (Other)
  Sender: FDA-Public Use
  Company Number: ES-GILEAD-2019-0388501

PATIENT
  Age: 54 Year
  Sex: Male

DRUGS (13)
  1. OMEPRAZOLE. [Concomitant]
     Active Substance: OMEPRAZOLE
  2. TACROLIMUS. [Concomitant]
     Active Substance: TACROLIMUS
  3. MICOFENOLATO DE MOFETIL ACCORD [Concomitant]
  4. PREDNISONE. [Concomitant]
     Active Substance: PREDNISONE
  5. GANCICLOVIR. [Concomitant]
     Active Substance: GANCICLOVIR
  6. VIREAD [Suspect]
     Active Substance: TENOFOVIR DISOPROXIL FUMARATE
     Indication: HEPATITIS B
     Dosage: UNK
     Route: 065
     Dates: start: 2012, end: 2017
  7. NISTATIN [Concomitant]
     Active Substance: NYSTATIN
  8. ENTECAVIR. [Concomitant]
     Active Substance: ENTECAVIR
  9. COTRIMOXAZOL [Concomitant]
     Active Substance: SULFAMETHOXAZOLE\TRIMETHOPRIM
  10. ALOPURINOL [Concomitant]
     Active Substance: ALLOPURINOL
  11. AMLODIPINO ACTAVIS [Concomitant]
  12. INSULIN [Concomitant]
     Active Substance: INSULIN NOS
  13. PARACETAMOL [Concomitant]
     Active Substance: ACETAMINOPHEN

REACTIONS (3)
  - Diabetes mellitus [Unknown]
  - Renal failure [Not Recovered/Not Resolved]
  - Proteinuria [Unknown]
